FAERS Safety Report 7931413-9 (Version None)
Quarter: 2011Q4

REPORT INFORMATION
  Report Type: 
  Country: None (occurrence: None)
  Receive Date: 20111121
  Receipt Date: 20111118
  Transmission Date: 20120403
  Serious: Yes (Other)
  Sender: FDA-Public Use
  Company Number: DE-BAYER-2011-111833

PATIENT
  Sex: Female

DRUGS (1)
  1. INTERFERON BETA-1B [Suspect]

REACTIONS (5)
  - TENDONITIS [None]
  - BURSITIS [None]
  - MUSCLE SWELLING [None]
  - OEDEMA [None]
  - BONE MARROW OEDEMA [None]
